FAERS Safety Report 11651509 (Version 1)
Quarter: 2015Q4

REPORT INFORMATION
  Report Type: Spontaneous
  Country: US (occurrence: None)
  Receive Date: 20151021
  Receipt Date: 20151021
  Transmission Date: 20160304
  Serious: Yes (Death)
  Sender: FDA-Public Use
  Company Number: None

PATIENT
  Age: 11 Month
  Sex: Male
  Weight: 5.95 kg

DRUGS (1)
  1. CASPOFUNGIN ACETATE [Suspect]
     Active Substance: CASPOFUNGIN ACETATE
     Dates: start: 20150120

REACTIONS (11)
  - Dehydration [None]
  - Pulmonary oedema [None]
  - Hypoxia [None]
  - Pupil fixed [None]
  - Juvenile chronic myelomonocytic leukaemia [None]
  - Respiratory distress [None]
  - Cardio-respiratory arrest [None]
  - Recurrent cancer [None]
  - Bronchiolitis [None]
  - Atelectasis [None]
  - Adenovirus infection [None]

NARRATIVE: CASE EVENT DATE: 20150323
